FAERS Safety Report 10812549 (Version 1)
Quarter: 2015Q1

REPORT INFORMATION
  Report Type: Spontaneous
  Country: US (occurrence: US)
  Receive Date: 20150218
  Receipt Date: 20150218
  Transmission Date: 20150721
  Serious: No
  Sender: FDA-Public Use
  Company Number: US-TEVA-483761USA

PATIENT
  Age: 48 Year
  Sex: Female

DRUGS (1)
  1. BUSPIRONE [Suspect]
     Active Substance: BUSPIRONE HYDROCHLORIDE
     Dosage: 20 MILLIGRAM DAILY;
     Dates: start: 20140505

REACTIONS (4)
  - Dysarthria [Unknown]
  - Feeling abnormal [Unknown]
  - Vertigo [Unknown]
  - Paraesthesia [Unknown]

NARRATIVE: CASE EVENT DATE: 201405
